FAERS Safety Report 5266101-3 (Version None)
Quarter: 2007Q1

REPORT INFORMATION
  Report Type: 
  Country: None (occurrence: None)
  Receive Date: 20070313
  Receipt Date: 20070313
  Transmission Date: 20070707
  Serious: Yes (Hospitalization)
  Sender: FDA-Public Use
  Company Number: None

PATIENT
  Age: 70 Year
  Sex: Female

DRUGS (4)
  1. CAPECITABINE [Suspect]
     Indication: COLON CANCER METASTATIC
     Dosage: 1150MG BID PO
     Route: 048
     Dates: start: 20060129, end: 20070209
  2. TOPROL-XL [Concomitant]
  3. VIT C [Concomitant]
  4. IRON [Concomitant]

REACTIONS (2)
  - DIARRHOEA [None]
  - SEDATION [None]
